FAERS Safety Report 9157058 (Version 1)
Quarter: 2013Q1

REPORT INFORMATION
  Report Type: Spontaneous
  Country: ZA (occurrence: ZA)
  Receive Date: 20130312
  Receipt Date: 20130312
  Transmission Date: 20140127
  Serious: Yes (Death)
  Sender: FDA-Public Use
  Company Number: ZA-MYLANLABS-2013S1004890

PATIENT
  Sex: 0

DRUGS (2)
  1. NEVIRAPINE [Suspect]
     Indication: HIV INFECTION WHO CLINICAL STAGE I
     Dosage: INITIAL DOSE
     Route: 064
  2. NEVIRAPINE [Suspect]
     Indication: HIV INFECTION WHO CLINICAL STAGE I
     Route: 064

REACTIONS (2)
  - Stillbirth [Fatal]
  - Exposure during pregnancy [Fatal]
